FAERS Safety Report 10156449 (Version 2)
Quarter: 2014Q2

REPORT INFORMATION
  Report Type: Spontaneous
  Country: US (occurrence: US)
  Receive Date: 20140507
  Receipt Date: 20140612
  Transmission Date: 20141212
  Serious: No
  Sender: FDA-Public Use
  Company Number: US-009507513-1405USA003377

PATIENT
  Sex: Male
  Weight: 81.63 kg

DRUGS (2)
  1. DULERA [Suspect]
     Route: 055
  2. [THERAPY UNSPECIFIED] [Concomitant]

REACTIONS (3)
  - Abdominal discomfort [Recovering/Resolving]
  - Vomiting [Recovering/Resolving]
  - Nausea [Recovered/Resolved]
